FAERS Safety Report 5152711-0 (Version None)
Quarter: 2006Q4

REPORT INFORMATION
  Report Type: 
  Country: None (occurrence: None)
  Receive Date: 20061109
  Receipt Date: 20061030
  Transmission Date: 20070319
  Serious: Yes (Hospitalization)
  Sender: FDA-Public Use
  Company Number: 163-20785-06101399

PATIENT
  Age: 83 Year
  Sex: Male

DRUGS (4)
  1. THALOMID [Suspect]
     Indication: MULTIPLE MYELOMA
     Dosage: 200 MG, 4 IN 1 D, ORAL
     Route: 048
     Dates: start: 20060613, end: 20060701
  2. INSULIN          (INSULIN) [Concomitant]
  3. THYROID                      MEDICATION (THYROID THERAPY) [Concomitant]
  4. DEXAMETHASONE TAB [Concomitant]

REACTIONS (5)
  - ANAEMIA [None]
  - DIZZINESS [None]
  - FALL [None]
  - METASTASES TO LUNG [None]
  - WEIGHT DECREASED [None]
